FAERS Safety Report 17211356 (Version 1)
Quarter: 2019Q4

REPORT INFORMATION
  Report Type: Spontaneous
  Country: US (occurrence: US)
  Receive Date: 20191228
  Receipt Date: 20191228
  Transmission Date: 20200122
  Serious: Yes (Hospitalization, Other)
  Sender: FDA-Public Use
  Company Number: US-BRISTOL-MYERS SQUIBB COMPANY-BMS-2019-124328

PATIENT

DRUGS (3)
  1. APIXABAN [Suspect]
     Active Substance: APIXABAN
     Indication: PRODUCT USED FOR UNKNOWN INDICATION
     Dosage: 5 MILLIGRAM, BID, 12 HOURS
     Route: 065
  2. ANDEXANET ALFA [Concomitant]
     Active Substance: ANDEXANET ALFA
     Indication: HAEMORRHAGE INTRACRANIAL
     Route: 065
  3. ANDEXANET ALFA [Concomitant]
     Active Substance: ANDEXANET ALFA
     Indication: HAEMORRHAGE
     Dosage: UNK
     Route: 065

REACTIONS (1)
  - Aortic intramural haematoma [Unknown]
